APPROVED DRUG PRODUCT: CEFOTETAN
Active Ingredient: CEFOTETAN DISODIUM
Strength: EQ 10GM BASE/VIAL
Dosage Form/Route: INJECTABLE;INJECTION
Application: A065375 | Product #001
Applicant: FRESENIUS KABI USA LLC
Approved: Aug 9, 2007 | RLD: No | RS: No | Type: DISCN